FAERS Safety Report 23424261 (Version 1)
Quarter: 2024Q1

REPORT INFORMATION
  Report Type: Spontaneous
  Country: US (occurrence: US)
  Receive Date: 20240120
  Receipt Date: 20240120
  Transmission Date: 20240409
  Serious: Yes (Other)
  Sender: FDA-Public Use
  Company Number: US-TEVA-VS-3147229

PATIENT
  Age: 70 Year

DRUGS (7)
  1. DEXAMETHASONE [Suspect]
     Active Substance: DEXAMETHASONE
     Indication: Pancreatic carcinoma metastatic
     Dosage: RECEIVED EVERY OTHER WEDNESDAY
     Route: 042
     Dates: start: 201812
  2. INSULIN LISPRO [Suspect]
     Active Substance: INSULIN LISPRO
     Indication: Type 2 diabetes mellitus
     Dosage: RECEIVED 15 UNITS BEFORE MEALS
     Route: 065
     Dates: start: 201903
  3. INSULIN DETEMIR [Suspect]
     Active Substance: INSULIN DETEMIR
     Indication: Type 2 diabetes mellitus
     Dosage: RECEIVED 30 UNITS AT NIGHT
     Route: 065
     Dates: start: 201903
  4. INSULIN DETEMIR [Suspect]
     Active Substance: INSULIN DETEMIR
     Indication: Type 2 diabetes mellitus
     Dosage: DOSE INCREASED TO 45 UNITS AT NIGHT
     Route: 065
     Dates: start: 201903
  5. INSULIN DETEMIR [Suspect]
     Active Substance: INSULIN DETEMIR
     Indication: Type 2 diabetes mellitus
     Dosage: RECEIVED 50 UNITS IN ANTE-MERIDIEM
     Route: 065
     Dates: start: 201903
  6. PIOGLITAZONE [Concomitant]
     Active Substance: PIOGLITAZONE
     Indication: Type 2 diabetes mellitus
     Route: 065
  7. FLUOROURACIL [Concomitant]
     Active Substance: FLUOROURACIL
     Indication: Pancreatic carcinoma metastatic
     Route: 065

REACTIONS (2)
  - Drug ineffective [Unknown]
  - Hyperglycaemia [Recovered/Resolved]
